FAERS Safety Report 11402485 (Version 1)
Quarter: 2015Q3

REPORT INFORMATION
  Report Type: Spontaneous
  Country: US (occurrence: US)
  Receive Date: 20150821
  Receipt Date: 20150821
  Transmission Date: 20151125
  Serious: No
  Sender: FDA-Public Use
  Company Number: US-ROCHE-1319989

PATIENT
  Sex: Male

DRUGS (1)
  1. PEGASYS [Suspect]
     Active Substance: PEGINTERFERON ALFA-2A
     Indication: MYELOFIBROSIS
     Dosage: FIRST SHIPPED 22-NOV-2013. 180MCG/1ML VIAL.  25ML
     Route: 058

REACTIONS (3)
  - Pain [Unknown]
  - Injection site erythema [Unknown]
  - Paraesthesia [Unknown]
